FAERS Safety Report 8995441 (Version 1)
Quarter: 2013Q1

REPORT INFORMATION
  Report Type: Spontaneous
  Country: US (occurrence: US)
  Receive Date: 20130103
  Receipt Date: 20130103
  Transmission Date: 20140127
  Serious: No
  Sender: FDA-Public Use
  Company Number: US-ABBOTT-12P-163-0912859-00

PATIENT
  Age: 64 Year
  Sex: Female
  Weight: 83.54 kg

DRUGS (1)
  1. SYNTHROID [Suspect]
     Indication: HYPOTHYROIDISM
     Dates: start: 200905

REACTIONS (8)
  - Sinusitis [Unknown]
  - Hypersensitivity [Unknown]
  - Nasal congestion [Unknown]
  - Rhinorrhoea [Unknown]
  - Lacrimation increased [Unknown]
  - Weight increased [Unknown]
  - Dry skin [Unknown]
  - Alopecia [Unknown]
